FAERS Safety Report 17882559 (Version 1)
Quarter: 2020Q2

REPORT INFORMATION
  Report Type: Spontaneous
  Country: CN (occurrence: CN)
  Receive Date: 20200610
  Receipt Date: 20200610
  Transmission Date: 20200714
  Serious: Yes (Other)
  Sender: FDA-Public Use
  Company Number: CN-FRESENIUS KABI-FK202005814

PATIENT
  Age: 56 Year
  Sex: Male

DRUGS (5)
  1. TIGECYCLINE (MANUFACTURER UNKNOWN) [Suspect]
     Active Substance: TIGECYCLINE
     Indication: BACTERIAL INFECTION
     Route: 041
  2. GANCICLOVIR. [Concomitant]
     Active Substance: GANCICLOVIR
     Indication: ANTI-INFECTIVE THERAPY
     Dosage: UNKNOWN
     Route: 065
  3. CEFOPERAZONE SODIUM/SULBACTAM SODIUM [Concomitant]
     Active Substance: CEFOPERAZONE SODIUM\SULBACTAM SODIUM
     Indication: ANTI-INFECTIVE THERAPY
     Dosage: UNKNOWN
     Route: 065
  4. TEICOPLANIN [Concomitant]
     Active Substance: TEICOPLANIN
     Indication: ANTI-INFECTIVE THERAPY
     Dosage: UNKNOWN
     Route: 065
  5. VORICONAZOLE. [Concomitant]
     Active Substance: VORICONAZOLE
     Indication: ANTI-INFECTIVE THERAPY
     Dosage: UNKNOWN
     Route: 065

REACTIONS (1)
  - Toxic epidermal necrolysis [Recovered/Resolved]
